FAERS Safety Report 23219946 (Version 2)
Quarter: 2023Q4

REPORT INFORMATION
  Report Type: Spontaneous
  Country: CA (occurrence: CA)
  Receive Date: 20231122
  Receipt Date: 20231208
  Transmission Date: 20240109
  Serious: Yes (Other)
  Sender: FDA-Public Use
  Company Number: CA-CELLTRION INC.-2017CA017238

PATIENT

DRUGS (30)
  1. INFLECTRA [Suspect]
     Active Substance: INFLIXIMAB-DYYB
     Indication: Colitis ulcerative
     Dosage: 300 MG, EVERY 0, 2, 6 WEEKS THEN EVERY 8 WEEKS
     Route: 042
     Dates: start: 20171124, end: 20210604
  2. INFLECTRA [Suspect]
     Active Substance: INFLIXIMAB-DYYB
     Dosage: 300 MG, EVERY 0, 2, 6 WEEKS THEN EVERY 8 WEEKS
     Route: 042
     Dates: start: 20180105
  3. INFLECTRA [Suspect]
     Active Substance: INFLIXIMAB-DYYB
     Dosage: 300 MG, EVERY 0, 2, 6 WEEKS THEN EVERY 8 WEEKS
     Route: 042
     Dates: start: 20180302
  4. INFLECTRA [Suspect]
     Active Substance: INFLIXIMAB-DYYB
     Dosage: 300 MG, EVERY 0, 2, 6 WEEKS THEN EVERY 8 WEEKS
     Route: 042
     Dates: start: 20180302
  5. INFLECTRA [Suspect]
     Active Substance: INFLIXIMAB-DYYB
     Dosage: 300 MG, EVERY 0, 2, 6 WEEKS THEN EVERY 8 WEEKS
     Route: 042
     Dates: start: 20190412
  6. INFLECTRA [Suspect]
     Active Substance: INFLIXIMAB-DYYB
     Dosage: 300 MG, EVERY 0, 2, 6 WEEKS THEN EVERY 8 WEEKS
     Route: 042
     Dates: start: 20190607
  7. INFLECTRA [Suspect]
     Active Substance: INFLIXIMAB-DYYB
     Dosage: 300 MG, EVERY 0, 2, 6 WEEKS THEN EVERY 8 WEEKS
     Route: 042
     Dates: start: 20190806
  8. INFLECTRA [Suspect]
     Active Substance: INFLIXIMAB-DYYB
     Dosage: 300 MG, EVERY 0, 2, 6 WEEKS THEN EVERY 8 WEEKS
     Route: 042
     Dates: start: 20191129
  9. INFLECTRA [Suspect]
     Active Substance: INFLIXIMAB-DYYB
     Dosage: 300 MG, EVERY 0, 2, 6 WEEKS THEN EVERY 8 WEEKS
     Route: 042
     Dates: start: 20200121
  10. INFLECTRA [Suspect]
     Active Substance: INFLIXIMAB-DYYB
     Dosage: 300 MG, EVERY 0, 2, 6 WEEKS THEN EVERY 8 WEEKS
     Route: 042
     Dates: start: 20200507
  11. INFLECTRA [Suspect]
     Active Substance: INFLIXIMAB-DYYB
     Dosage: 300 MG, EVERY 0, 2, 6 WEEKS THEN EVERY 8 WEEKS
     Route: 042
     Dates: start: 20200629
  12. INFLECTRA [Suspect]
     Active Substance: INFLIXIMAB-DYYB
     Dosage: 300 MG, EVERY 0, 2, 6 WEEKS THEN EVERY 8 WEEKS
     Route: 042
     Dates: start: 20200821
  13. INFLECTRA [Suspect]
     Active Substance: INFLIXIMAB-DYYB
     Dosage: 300 MG, EVERY 8 WEEKS
     Route: 042
  14. INFLECTRA [Suspect]
     Active Substance: INFLIXIMAB-DYYB
     Dosage: 300 MG, EVERY 8 WEEKS
     Route: 042
     Dates: start: 20210604
  15. INFLECTRA [Suspect]
     Active Substance: INFLIXIMAB-DYYB
     Dosage: 600 MG, 10 MG/KG EVERY 8 WEEKS
     Route: 042
     Dates: start: 20210730, end: 20211119
  16. INFLECTRA [Suspect]
     Active Substance: INFLIXIMAB-DYYB
     Dosage: 600 MG, 10 MG/KG EVERY 8 WEEKS
     Route: 042
     Dates: start: 20211217
  17. INFLECTRA [Suspect]
     Active Substance: INFLIXIMAB-DYYB
     Dosage: 600 MG, 10 MG/KG EVERY 4 WEEKS
     Route: 042
     Dates: start: 20211217
  18. INFLECTRA [Suspect]
     Active Substance: INFLIXIMAB-DYYB
     Dosage: 600 MG, 10 MG/KG EVERY 4 WEEKS
     Route: 042
     Dates: start: 20220311
  19. INFLECTRA [Suspect]
     Active Substance: INFLIXIMAB-DYYB
     Dosage: 10 MG/KG (600 MG), EVERY 4 WEEKS
     Route: 042
     Dates: start: 20230728
  20. INFLECTRA [Suspect]
     Active Substance: INFLIXIMAB-DYYB
     Dosage: 10 MG/KG (600 MG), EVERY 4 WEEKS
     Route: 042
     Dates: start: 20230922, end: 2023
  21. BETAMETHASONE SODIUM PHOSPHATE [Concomitant]
     Active Substance: BETAMETHASONE SODIUM PHOSPHATE
     Indication: Haemorrhage
     Dosage: UNK, AS NEEDED
     Route: 065
     Dates: start: 1998
  22. DOXYCYCLINE HYCLATE [Concomitant]
     Active Substance: DOXYCYCLINE HYCLATE
     Indication: Rosacea
     Dosage: 50 MG, DAILY
     Route: 048
     Dates: start: 2014
  23. ENTOCORT [Concomitant]
     Active Substance: BUDESONIDE
     Dosage: 1 DF, 1X/DAY
     Route: 048
     Dates: start: 201605
  24. LASIX [Concomitant]
     Active Substance: FUROSEMIDE
     Dosage: 0.5 TABLET, (1/2 TAB) DAILY
     Route: 048
     Dates: start: 1997
  25. LASIX [Concomitant]
     Active Substance: FUROSEMIDE
     Dosage: 1 DF, DAILY 1/2 TAB
     Route: 048
     Dates: start: 1997
  26. ALBUTEROL [Concomitant]
     Active Substance: ALBUTEROL
     Indication: Seasonal allergy
     Dosage: 1 DF,2 PUFFS, AS NEEDED
     Route: 055
  27. AMINOSALICYLIC ACID [Concomitant]
     Active Substance: AMINOSALICYLIC ACID
     Dosage: 1 DF, 8-12 TABS DAILY AS NEEDED
     Route: 048
     Dates: start: 201605
  28. VENTOLIN [Concomitant]
     Active Substance: ALBUTEROL SULFATE
     Indication: Seasonal allergy
     Dosage: UNK, 1 PUFF AS NEEDED
     Route: 055
  29. ZOLOFT [Concomitant]
     Active Substance: SERTRALINE HYDROCHLORIDE
     Dosage: 100 MG, DAILY AT BED TIME
     Route: 048
     Dates: start: 201708
  30. ZOPICLONE [Concomitant]
     Active Substance: ZOPICLONE
     Dosage: 1 PILL, DAILY HS AT BED TIME
     Route: 048
     Dates: start: 2010

REACTIONS (12)
  - Neuropathy peripheral [Recovering/Resolving]
  - Loss of therapeutic response [Unknown]
  - Drug level decreased [Unknown]
  - Condition aggravated [Recovered/Resolved]
  - Weight decreased [Unknown]
  - C-reactive protein increased [Unknown]
  - Malaise [Unknown]
  - Herpes zoster [Recovered/Resolved]
  - Off label use [Unknown]
  - Off label use [Unknown]
  - Off label use [Unknown]
  - Intentional product use issue [Unknown]

NARRATIVE: CASE EVENT DATE: 20171124
